FAERS Safety Report 20344899 (Version 1)
Quarter: 2022Q1

REPORT INFORMATION
  Report Type: Spontaneous
  Country: PE (occurrence: None)
  Receive Date: 20220118
  Receipt Date: 20220118
  Transmission Date: 20220423
  Serious: Yes (Other)
  Sender: FDA-Public Use
  Company Number: PE-ROCHE-3002779

PATIENT

DRUGS (1)
  1. RITUXIMAB [Suspect]
     Active Substance: RITUXIMAB
     Indication: Follicular lymphoma
     Dosage: DOSE AND FREQUENCY WERE NOT REPORTED
     Route: 041

REACTIONS (3)
  - Recurrent cancer [Unknown]
  - Product dose omission issue [Unknown]
  - Drug ineffective [Unknown]
